FAERS Safety Report 19329049 (Version 1)
Quarter: 2021Q2

REPORT INFORMATION
  Report Type: Spontaneous
  Country: US (occurrence: US)
  Receive Date: 20210528
  Receipt Date: 20210528
  Transmission Date: 20210717
  Serious: No
  Sender: FDA-Public Use
  Company Number: US-BRISTOL-MYERS SQUIBB COMPANY-BMS-2021-052125

PATIENT
  Age: 58 Year
  Sex: Male

DRUGS (1)
  1. ORENCIA [Suspect]
     Active Substance: ABATACEPT
     Indication: PRODUCT USED FOR UNKNOWN INDICATION
     Dosage: INJ 1 INECTION ONCE WEEKLY
     Route: 048

REACTIONS (2)
  - Intentional product use issue [Unknown]
  - Infection [Unknown]

NARRATIVE: CASE EVENT DATE: 20210525
